FAERS Safety Report 10206520 (Version 24)
Quarter: 2017Q1

REPORT INFORMATION
  Report Type: Spontaneous
  Country: US (occurrence: US)
  Receive Date: 20140530
  Receipt Date: 20170307
  Transmission Date: 20170428
  Serious: Yes (Hospitalization, Other)
  Sender: FDA-Public Use
  Company Number: US-GLAXOSMITHKLINE-A1022705A

PATIENT
  Age: 54 Year
  Sex: Female

DRUGS (26)
  1. FLOLAN [Suspect]
     Active Substance: EPOPROSTENOL SODIUM
     Dosage: UNK
  2. FLOLAN [Suspect]
     Active Substance: EPOPROSTENOL SODIUM
     Dosage: 75 NG/KG/MIN (CONCENTRATION 90,000 NG/ML, PUMP RATE 90 ML/DAY, VIAL STRENGTH 1.5 MG), CO
     Route: 042
  3. FLOLAN [Suspect]
     Active Substance: EPOPROSTENOL SODIUM
     Dosage: 75 NG/KG/MIN (CONCENTRATION 90,000 NG/ML, PUMP RATE 75 ML/DAY, VIAL STRENGTH 1.5 MG), CO
     Route: 042
  4. FLOLAN [Suspect]
     Active Substance: EPOPROSTENOL SODIUM
     Indication: PULMONARY ARTERIAL HYPERTENSION
     Dosage: CONCENTRATION 60,000 NG/ML53 NG/KG/MIN, CONCENTRATION 75,000 NG/ML, PUMP RATE 76 ML/DAY, VIAL S[...]
     Route: 042
     Dates: start: 20061206
  5. FLOLAN [Suspect]
     Active Substance: EPOPROSTENOL SODIUM
     Dosage: 58NG/KG/MIN (CONCENTRATION 75,000 NG/ML, PUMP RATE 84 ML/DAY, VIAL STRENGTH 1.5), CO
     Route: 042
  6. FLOLAN [Suspect]
     Active Substance: EPOPROSTENOL SODIUM
     Dosage: 60 NG/KG/MIN (CONCENTRATION 75,000 NG/ML, PUMP RATE 86 ML/DAY, VIAL STRENGTH 1.5 MG), CO
     Route: 042
  7. FLOLAN [Suspect]
     Active Substance: EPOPROSTENOL SODIUM
     Dosage: UNK
     Dates: start: 20061206
  8. FLOLAN [Suspect]
     Active Substance: EPOPROSTENOL SODIUM
     Dosage: 62.5 NG/KG/MIN (CONCENTRATION 75,000 NG/ML, PUMP RATE 90 ML/DAY, VIAL STRENGTH 1.5 MG), CO
     Route: 042
  9. FLOLAN [Suspect]
     Active Substance: EPOPROSTENOL SODIUM
     Dosage: 82 DF, CO
  10. ADCIRCA [Concomitant]
     Active Substance: TADALAFIL
  11. FLOLAN [Suspect]
     Active Substance: EPOPROSTENOL SODIUM
     Dosage: UNK, CO
     Dates: start: 20061206
  12. FLOLAN [Suspect]
     Active Substance: EPOPROSTENOL SODIUM
     Dosage: UNK
     Dates: start: 20061206
  13. FLOLAN [Suspect]
     Active Substance: EPOPROSTENOL SODIUM
     Dosage: UNK, CO
     Dates: start: 20061206
  14. FLOLAN [Suspect]
     Active Substance: EPOPROSTENOL SODIUM
     Dosage: UNK
  15. ADEMPAS [Concomitant]
     Active Substance: RIOCIGUAT
  16. FLOLAN [Suspect]
     Active Substance: EPOPROSTENOL SODIUM
     Dosage: 71 NG/KG/MIN (CONCENTRATION 90,000 NG/ML, PUMP RATE 85 ML/DAY, VIAL STRENGTH 1.5 MG), CO
     Route: 042
     Dates: start: 20061206
  17. FLOLAN [Suspect]
     Active Substance: EPOPROSTENOL SODIUM
     Dosage: 79 NG/KG/MIN (CONCENTRATION 105,000 NG/ML, PUMP RATE 81 ML/DAY, VIAL STRENGTH 1.5MG), CO
     Route: 042
     Dates: start: 20061206
  18. FLOLAN [Suspect]
     Active Substance: EPOPROSTENOL SODIUM
     Dosage: 82 NG/KG/MIN CO
     Route: 042
     Dates: start: 20061206
  19. FLOLAN [Suspect]
     Active Substance: EPOPROSTENOL SODIUM
     Dosage: 82 DF, CO
  20. FLOLAN [Suspect]
     Active Substance: EPOPROSTENOL SODIUM
     Indication: PULMONARY ARTERIAL HYPERTENSION
     Dosage: UNK, CO
     Dates: start: 20061206
  21. FLOLAN [Suspect]
     Active Substance: EPOPROSTENOL SODIUM
     Dosage: UNK
  22. FLOLAN [Suspect]
     Active Substance: EPOPROSTENOL SODIUM
     Indication: PULMONARY ARTERIAL HYPERTENSION
     Dosage: UNK, U
  23. FLOLAN [Suspect]
     Active Substance: EPOPROSTENOL SODIUM
     Dosage: UNK
  24. FLOLAN [Suspect]
     Active Substance: EPOPROSTENOL SODIUM
     Dosage: 82 NG/KG/MIN, CO
     Route: 042
     Dates: start: 20061206
  25. OXYGEN. [Concomitant]
     Active Substance: OXYGEN
  26. COUMADIN [Concomitant]
     Active Substance: WARFARIN SODIUM
     Indication: PRODUCT USED FOR UNKNOWN INDICATION
     Dosage: UNK

REACTIONS (36)
  - Organ failure [Unknown]
  - Device occlusion [Unknown]
  - Oxygen saturation decreased [Unknown]
  - Feeling abnormal [Unknown]
  - Pallor [Unknown]
  - Peripheral coldness [Unknown]
  - Neck pain [Unknown]
  - Osteomyelitis [Unknown]
  - Cellulitis [Unknown]
  - Lower respiratory tract infection [Unknown]
  - Sepsis [Unknown]
  - Tinnitus [Not Recovered/Not Resolved]
  - Dyspnoea [Unknown]
  - Rash pruritic [Not Recovered/Not Resolved]
  - Pain [Not Recovered/Not Resolved]
  - Central venous catheter removal [Unknown]
  - Palpitations [Unknown]
  - Sinus pain [Not Recovered/Not Resolved]
  - Somnolence [Unknown]
  - Catheterisation cardiac [Unknown]
  - Device related infection [Unknown]
  - Rash generalised [Not Recovered/Not Resolved]
  - Pain in jaw [Not Recovered/Not Resolved]
  - Condition aggravated [Unknown]
  - Fatigue [Unknown]
  - Joint swelling [Unknown]
  - Hospitalisation [Unknown]
  - Chest pain [Recovered/Resolved]
  - Dizziness postural [Unknown]
  - Oxygen supplementation [Not Recovered/Not Resolved]
  - Sinus disorder [Unknown]
  - Essential hypertension [Unknown]
  - Musculoskeletal pain [Unknown]
  - Central venous catheterisation [Unknown]
  - Complication associated with device [Not Recovered/Not Resolved]
  - Dyspnoea exertional [Not Recovered/Not Resolved]

NARRATIVE: CASE EVENT DATE: 2011
